FAERS Safety Report 8025318-5 (Version None)
Quarter: 2011Q4

REPORT INFORMATION
  Report Type: 
  Country: None (occurrence: None)
  Receive Date: 20111130
  Receipt Date: 20110303
  Transmission Date: 20120403
  Serious: Yes (Other)
  Sender: FDA-Public Use
  Company Number: 324423

PATIENT
  Age: 79 Year
  Sex: Male

DRUGS (2)
  1. LANTUS [Concomitant]
  2. NOVOLOG [Suspect]
     Indication: TYPE 2 DIABETES MELLITUS

REACTIONS (2)
  - WRONG DRUG ADMINISTERED [None]
  - BLOOD GLUCOSE DECREASED [None]
